FAERS Safety Report 4615895-6 (Version None)
Quarter: 2005Q1

REPORT INFORMATION
  Report Type: 
  Country: None (occurrence: None)
  Receive Date: 20050318
  Receipt Date: 20050308
  Transmission Date: 20050727
  Serious: Yes (Hospitalization)
  Sender: FDA-Public Use
  Company Number: 2005042655

PATIENT
  Age: 77 Year
  Sex: Female

DRUGS (11)
  1. CELEBREX [Suspect]
     Indication: ANALGESIC EFFECT
     Dosage: 100 MG (100 MG, 1 IN 1 D), ORAL
     Route: 048
     Dates: start: 20041020, end: 20041101
  2. LITHIUM CARBONATE [Concomitant]
  3. ERGOCALCIFEROL (ERGOCALCIFEROL) [Concomitant]
  4. NULYTELY (MACROGOL, POTASSIUM CHLORIDE, SODIUM BICARBONATE, SODIUM CHL [Concomitant]
  5. OMEPRAZOLE [Concomitant]
  6. METFORMIN HCL [Concomitant]
  7. PREDNISONE [Concomitant]
  8. IMIPRAMINE [Concomitant]
  9. TRIMETHOPRIM [Concomitant]
  10. ACETAMINOPHEN [Concomitant]
  11. TRIAMCINOLONE [Concomitant]

REACTIONS (4)
  - CONFUSIONAL STATE [None]
  - HALLUCINATION [None]
  - PANIC REACTION [None]
  - PARANOIA [None]
